FAERS Safety Report 12289265 (Version 1)
Quarter: 2016Q2

REPORT INFORMATION
  Report Type: Spontaneous
  Country: US (occurrence: None)
  Receive Date: 20160420
  Receipt Date: 20160420
  Transmission Date: 20160815
  Serious: Yes (Other)
  Sender: FDA-Public Use
  Company Number: None

PATIENT
  Age: 67 Year
  Sex: Male
  Weight: 90.72 kg

DRUGS (5)
  1. INVEGA [Suspect]
     Active Substance: PALIPERIDONE
     Indication: SCHIZOPHRENIA
     Dosage: INJECTION TO MUSCLE
     Dates: start: 20160413
  2. IRON [Concomitant]
     Active Substance: IRON
  3. COUMADIN [Concomitant]
     Active Substance: WARFARIN SODIUM
  4. TORSEMIDE. [Concomitant]
     Active Substance: TORSEMIDE
  5. VITAMIN D [Concomitant]
     Active Substance: CHOLECALCIFEROL

REACTIONS (4)
  - Breast discomfort [None]
  - Tardive dyskinesia [None]
  - Breast induration [None]
  - Gynaecomastia [None]

NARRATIVE: CASE EVENT DATE: 20160414
